FAERS Safety Report 23239792 (Version 2)
Quarter: 2024Q1

REPORT INFORMATION
  Report Type: Report from Study
  Country: AU (occurrence: AU)
  Receive Date: 20231129
  Receipt Date: 20240306
  Transmission Date: 20240409
  Serious: Yes (Hospitalization, Other)
  Sender: FDA-Public Use
  Company Number: AU-002147023-NVSC2023AU248497

PATIENT
  Sex: Male

DRUGS (1)
  1. COSENTYX [Suspect]
     Active Substance: SECUKINUMAB
     Indication: Psoriatic arthropathy
     Dosage: UNK
     Route: 058
     Dates: start: 20201127

REACTIONS (3)
  - Sinus disorder [Unknown]
  - Nasal septum deviation [Unknown]
  - Post procedural haemorrhage [Unknown]
